FAERS Safety Report 16423941 (Version 1)
Quarter: 2019Q2

REPORT INFORMATION
  Report Type: Spontaneous
  Country: US (occurrence: US)
  Receive Date: 20190613
  Receipt Date: 20190613
  Transmission Date: 20190711
  Serious: Yes (Hospitalization)
  Sender: FDA-Public Use
  Company Number: US-PHARMING-PHAUS2019000399

PATIENT

DRUGS (14)
  1. RUCONEST [Suspect]
     Active Substance: HUMAN C1-ESTERASE INHIBITOR
     Indication: HEREDITARY ANGIOEDEMA
     Dosage: 3230 IU, AS NEEDED
     Route: 042
     Dates: start: 20190404
  2. CINRYZE [Concomitant]
     Active Substance: HUMAN C1-ESTERASE INHIBITOR
  3. HYDRALAZINE [Concomitant]
     Active Substance: HYDRALAZINE HYDROCHLORIDE
  4. CITALOPRAM [Concomitant]
     Active Substance: CITALOPRAM HYDROBROMIDE
  5. VALIUM [Concomitant]
     Active Substance: DIAZEPAM
  6. DANAZOL. [Concomitant]
     Active Substance: DANAZOL
  7. HEPARIN [Concomitant]
     Active Substance: HEPARIN SODIUM
  8. EPINEPHRINE. [Concomitant]
     Active Substance: EPINEPHRINE
  9. HYDROCODONE [Concomitant]
     Active Substance: HYDROCODONE
  10. CLONIDINE. [Concomitant]
     Active Substance: CLONIDINE
  11. PRAVASTATIN. [Concomitant]
     Active Substance: PRAVASTATIN
  12. DIAZEPAM. [Concomitant]
     Active Substance: DIAZEPAM
  13. SOMA [Concomitant]
     Active Substance: CARISOPRODOL
  14. CENTRUM [Concomitant]
     Active Substance: VITAMINS

REACTIONS (2)
  - Vascular access site swelling [Unknown]
  - Vascular access site complication [Unknown]
